FAERS Safety Report 16084412 (Version 1)
Quarter: 2019Q2

REPORT INFORMATION
  Report Type: Spontaneous
  Country: US (occurrence: US)
  Receive Date: 20190317
  Receipt Date: 20190317
  Transmission Date: 20190711
  Serious: Yes (Death, Congenital Anomaly)
  Sender: FDA-Public Use
  Company Number: None

PATIENT
  Age: 32 Year
  Sex: Female
  Weight: 59.85 kg

DRUGS (1)
  1. CLOMID [Suspect]
     Active Substance: CLOMIPHENE CITRATE
     Indication: ANOVULATORY CYCLE
     Route: 048
     Dates: start: 20130830, end: 20130904

REACTIONS (6)
  - Product complaint [None]
  - Pregnancy [None]
  - Death of relative [None]
  - Cardiac failure [None]
  - Maternal drugs affecting foetus [None]
  - Congenital aortic anomaly [None]

NARRATIVE: CASE EVENT DATE: 20130903
